FAERS Safety Report 6804372-X (Version None)
Quarter: 2010Q2

REPORT INFORMATION
  Report Type: 
  Country: None (occurrence: None)
  Receive Date: 20100628
  Receipt Date: 20070320
  Transmission Date: 20101027
  Serious: Yes (Other)
  Sender: FDA-Public Use
  Company Number: US-PFIZER INC-2007015693

PATIENT
  Sex: Female
  Weight: 83.9 kg

DRUGS (6)
  1. GEODON [Suspect]
     Indication: BIPOLAR DISORDER
     Dates: start: 20070215, end: 20070220
  2. GEODON [Suspect]
     Indication: SLEEP DISORDER
  3. ALL OTHER THERAPEUTIC PRODUCTS [Concomitant]
  4. SYNTHROID [Concomitant]
  5. ZETIA [Concomitant]
  6. MOTRIN [Concomitant]

REACTIONS (5)
  - BLOOD TRIGLYCERIDES INCREASED [None]
  - HYPERSENSITIVITY [None]
  - MIGRAINE [None]
  - PRURITUS [None]
  - PRURITUS GENERALISED [None]
